FAERS Safety Report 8215406-2 (Version None)
Quarter: 2012Q1

REPORT INFORMATION
  Report Type: 
  Country: None (occurrence: None)
  Receive Date: 20120314
  Receipt Date: 20120302
  Transmission Date: 20120608
  Serious: Yes (Hospitalization)
  Sender: FDA-Public Use
  Company Number: IMP_05767_2012

PATIENT
  Sex: Male
  Weight: 85.7298 kg

DRUGS (3)
  1. OXYMORPHONE HYDROCHLORIDE [Suspect]
     Indication: PRODUCT USED FOR UNKNOWN INDICATION
     Dosage: (DF)
  2. NALTREXONE HCL (02/29/2012 TO 02/29/2012, 03/01/2012 TO 03/01/2012) [Concomitant]
  3. OXYMORPHONE HYDROCHLORIDE [Suspect]
     Indication: PRODUCT USED FOR UNKNOWN INDICATION
     Dosage: (40 MG, ONCE ORAL)
     Route: 048
     Dates: start: 20120301, end: 20120301

REACTIONS (10)
  - CHEST PAIN [None]
  - VOMITING [None]
  - ATRIAL FIBRILLATION [None]
  - HEADACHE [None]
  - HEART RATE IRREGULAR [None]
  - NAUSEA [None]
  - DYSPNOEA [None]
  - LYMPHOCYTE COUNT INCREASED [None]
  - DIZZINESS [None]
  - HYPERHIDROSIS [None]
